FAERS Safety Report 6137279-4 (Version None)
Quarter: 2009Q1

REPORT INFORMATION
  Report Type: 
  Country: None (occurrence: None)
  Receive Date: 20090330
  Receipt Date: 20090319
  Transmission Date: 20090719
  Serious: Yes (Other)
  Sender: FDA-Public Use
  Company Number: JP-JNJFOC-20090305967

PATIENT
  Sex: Female
  Weight: 50 kg

DRUGS (11)
  1. REMICADE [Suspect]
     Route: 042
  2. REMICADE [Suspect]
     Route: 042
  3. REMICADE [Suspect]
     Route: 042
  4. REMICADE [Suspect]
     Route: 042
  5. REMICADE [Suspect]
     Indication: CROHN'S DISEASE
     Route: 042
  6. TALION [Concomitant]
     Route: 048
  7. GASTER [Concomitant]
     Route: 048
  8. GASTER [Concomitant]
     Indication: PEPTIC ULCER
     Route: 048
  9. PREDONINE [Concomitant]
     Indication: CROHN'S DISEASE
     Route: 048
  10. PENTASA [Concomitant]
     Indication: CROHN'S DISEASE
     Route: 048
  11. FLAGYL [Concomitant]
     Route: 048

REACTIONS (4)
  - CYANOSIS [None]
  - INFUSION RELATED REACTION [None]
  - OXYGEN SATURATION DECREASED [None]
  - RASH [None]
